FAERS Safety Report 17678911 (Version 2)
Quarter: 2020Q2

REPORT INFORMATION
  Report Type: Spontaneous
  Country: US (occurrence: US)
  Receive Date: 20200417
  Receipt Date: 20200417
  Transmission Date: 20200714
  Serious: No
  Sender: FDA-Public Use
  Company Number: US-JNJFOC-20200413304

PATIENT
  Sex: Female
  Weight: 45.4 kg

DRUGS (1)
  1. WOMENS ROGAINE UNSCENTED [Suspect]
     Active Substance: MINOXIDIL
     Indication: ALOPECIA
     Dosage: HALF CUP OF FULL?PRODUCT LAST USED ON 03/APR/2020
     Route: 061
     Dates: start: 20191103

REACTIONS (1)
  - Drug ineffective [Unknown]
